FAERS Safety Report 21286769 (Version 1)
Quarter: 2022Q3

REPORT INFORMATION
  Report Type: Spontaneous
  Country: US (occurrence: None)
  Receive Date: 20220902
  Receipt Date: 20220902
  Transmission Date: 20221027
  Serious: No
  Sender: FDA-Public Use
  Company Number: None

PATIENT

DRUGS (2)
  1. DEXTROAMPHET SACCHARAT, AMPHET ASPARTATE, DEXTROAMPHET SULFATE AND AMP [Suspect]
     Active Substance: AMPHETAMINE ASPARTATE\AMPHETAMINE SULFATE\DEXTROAMPHETAMINE SACCHARATE\DEXTROAMPHETAMINE SULFATE
  2. SINGULAIR [Suspect]
     Active Substance: MONTELUKAST SODIUM

REACTIONS (10)
  - Malaise [None]
  - Chest discomfort [None]
  - Tinnitus [None]
  - Panic attack [None]
  - Hyperhidrosis [None]
  - Arrhythmia [None]
  - Product substitution issue [None]
  - Product shape issue [None]
  - Product dispensing error [None]
  - Wrong product administered [None]
